FAERS Safety Report 8708583 (Version 4)
Quarter: 2012Q4

REPORT INFORMATION
  Report Type: 
  Country: US (occurrence: US)
  Receive Date: 20120806
  Receipt Date: 20121210
  Transmission Date: 20130627
  Serious: Yes (Disabling, Other)
  Sender: FDA-Public Use
  Company Number: US-US-EMD SERONO, INC.-7151151

PATIENT
  Sex: Female
  Weight: 59 kg

DRUGS (4)
  1. REBIF [Suspect]
     Indication: MULTIPLE SCLEROSIS
     Route: 058
     Dates: start: 20120327
  2. KEPPRA XR [Concomitant]
     Indication: EPILEPSY
     Route: 048
  3. AMITRIPTYLINE [Concomitant]
     Indication: MIGRAINE
     Route: 048
  4. BACLOFEN [Concomitant]
     Indication: MUSCLE SPASMS
     Route: 048

REACTIONS (3)
  - Blindness [Recovered/Resolved]
  - Eye irritation [Recovered/Resolved]
  - Convulsion [Recovered/Resolved]
